FAERS Safety Report 23324602 (Version 1)
Quarter: 2023Q4

REPORT INFORMATION
  Report Type: Spontaneous
  Country: ES (occurrence: ES)
  Receive Date: 20231221
  Receipt Date: 20231221
  Transmission Date: 20240110
  Serious: Yes (Death, Life-Threatening, Hospitalization, Other)
  Sender: FDA-Public Use
  Company Number: None

PATIENT
  Age: 45 Year
  Sex: Female

DRUGS (9)
  1. KEYTRUDA [Suspect]
     Active Substance: PEMBROLIZUMAB
     Indication: Thymoma
     Dosage: 1 CYCLE EVERY 14 DAYS
     Route: 042
     Dates: start: 20231023, end: 20231113
  2. AMLODIPINO VIR PHARMA [Concomitant]
     Dosage: 1 CP EVERY 24 HOURS
     Route: 048
  3. PANTOPRAZOL TEVAGEN [Concomitant]
     Dosage: 1 CP EVERY 12 HOURS
     Route: 048
  4. PREDNISONE [Concomitant]
     Active Substance: PREDNISONE
     Dosage: 1 CP EVERY 24 HOURS
     Route: 048
  5. PREDNISONE [Concomitant]
     Active Substance: PREDNISONE
     Dosage: 1 CP EVERY 24 HOURS; STRENGTH: 5 MG
     Route: 048
  6. PREDNISONE [Concomitant]
     Active Substance: PREDNISONE
     Dosage: 1 CP EVERY 24 HOURS, STRENGTH: 10 MG
     Route: 048
  7. RAMIPRIL TEVAGEN [Concomitant]
     Dosage: 1 CP EVERY 24 HOURS
     Route: 048
  8. METHYLPREDNISOLONE [Concomitant]
     Active Substance: METHYLPREDNISOLONE
     Dosage: 250 MILLIGRAM, STRENGTH: 40 MG POWDER AND SOLVENT FOR SOLUTION FOR INJECTION EFG, 1 VIAL + 1 AMPOULE
     Route: 040
  9. MESTINON [Concomitant]
     Active Substance: PYRIDOSTIGMINE BROMIDE
     Dosage: 1 CP EVERY 4 HOURS, RESPECTING SLEEP
     Route: 048

REACTIONS (2)
  - Myopericarditis [Fatal]
  - Myasthenia gravis [Fatal]

NARRATIVE: CASE EVENT DATE: 20231110
